FAERS Safety Report 9700293 (Version 3)
Quarter: 2013Q4

REPORT INFORMATION
  Report Type: Spontaneous
  Country: GR (occurrence: GR)
  Receive Date: 20131121
  Receipt Date: 20131125
  Transmission Date: 20140711
  Serious: Yes (Other)
  Sender: FDA-Public Use
  Company Number: GR-JNJFOC-20131108602

PATIENT
  Sex: Female

DRUGS (4)
  1. REMICADE [Suspect]
     Indication: PSORIASIS
     Dosage: 100 MG/VIAL
     Route: 042
     Dates: start: 20100420
  2. REMICADE [Suspect]
     Indication: PSORIASIS
     Route: 042
  3. REMICADE [Suspect]
     Indication: CROHN^S DISEASE
     Dosage: 100 MG/VIAL
     Route: 042
     Dates: start: 20100420
  4. REMICADE [Suspect]
     Indication: CROHN^S DISEASE
     Route: 042

REACTIONS (4)
  - Dermatitis infected [Unknown]
  - Arthritis [Recovered/Resolved]
  - Drug ineffective [Unknown]
  - Dry skin [Recovered/Resolved]
